FAERS Safety Report 11390276 (Version 1)
Quarter: 2015Q3

REPORT INFORMATION
  Report Type: Spontaneous
  Country: DE (occurrence: DE)
  Receive Date: 20150818
  Receipt Date: 20150818
  Transmission Date: 20151125
  Serious: Yes (Death, Life-Threatening)
  Sender: FDA-Public Use
  Company Number: DE-ACCORD-033080

PATIENT
  Age: 63 Year
  Sex: Male
  Weight: 58 kg

DRUGS (2)
  1. PACLITAXEL/PACLITAXEL LIPOSOME [Suspect]
     Active Substance: PACLITAXEL
     Indication: METASTATIC BRONCHIAL CARCINOMA
     Dosage: APPLIED FOR FEW MINUTE, GIVEN ABOUT 20 ML
     Route: 042
  2. CARBOPLATIN. [Concomitant]
     Active Substance: CARBOPLATIN
     Indication: METASTATIC BRONCHIAL CARCINOMA

REACTIONS (3)
  - Flushing [Not Recovered/Not Resolved]
  - Myocardial infarction [Fatal]
  - Tachyarrhythmia [Not Recovered/Not Resolved]

NARRATIVE: CASE EVENT DATE: 20150723
